FAERS Safety Report 14898602 (Version 1)
Quarter: 2018Q2

REPORT INFORMATION
  Report Type: Spontaneous
  Country: US (occurrence: US)
  Receive Date: 20180515
  Receipt Date: 20180515
  Transmission Date: 20180711
  Serious: No
  Sender: FDA-Public Use
  Company Number: US-ELI_LILLY_AND_COMPANY-US201805005048

PATIENT
  Sex: Female

DRUGS (1)
  1. CYMBALTA [Suspect]
     Active Substance: DULOXETINE HYDROCHLORIDE
     Indication: DEPRESSION
     Dosage: 50 MG, UNKNOWN
     Route: 065

REACTIONS (6)
  - Fluid retention [Unknown]
  - Gait disturbance [Unknown]
  - Sleep disorder [Unknown]
  - Limb discomfort [Unknown]
  - Weight increased [Unknown]
  - Peripheral swelling [Unknown]
